FAERS Safety Report 9184612 (Version 2)
Quarter: 2018Q1

REPORT INFORMATION
  Report Type: Report from Study
  Country: DE (occurrence: DE)
  Receive Date: 20130324
  Receipt Date: 20180124
  Transmission Date: 20180509
  Serious: Yes (Other)
  Sender: FDA-Public Use
  Company Number: DE-GILEAD-2013-0071854

PATIENT
  Age: 62 Year
  Sex: Male

DRUGS (2)
  1. PEGINTERFERON ALFA-2A. [Suspect]
     Active Substance: PEGINTERFERON ALFA-2A
     Indication: HEPATITIS D
     Dosage: 180 UG, Q1WK
     Route: 065
  2. TENOFOVIR DISOPROXIL FUMARATE. [Suspect]
     Active Substance: TENOFOVIR DISOPROXIL FUMARATE
     Indication: HEPATITIS D
     Dosage: 245 MG, QD
     Route: 065

REACTIONS (1)
  - Anal ulcer [Recovered/Resolved]

NARRATIVE: CASE EVENT DATE: 20100321
